FAERS Safety Report 5204203-8 (Version None)
Quarter: 2007Q1

REPORT INFORMATION
  Report Type: 
  Country: None (occurrence: None)
  Receive Date: 20070110
  Receipt Date: 20060109
  Transmission Date: 20070707
  Serious: No
  Sender: FDA-Public Use
  Company Number: US-BRISTOL-MYERS SQUIBB COMPANY-13240452

PATIENT
  Age: 27 Year
  Sex: Female

DRUGS (6)
  1. ABILIFY [Suspect]
     Indication: BIPOLAR DISORDER
     Dates: start: 20060108
  2. ABILIFY [Suspect]
     Indication: MOOD SWINGS
     Dates: start: 20060108
  3. LAMICTAL [Concomitant]
  4. ZOLOFT [Concomitant]
  5. XANAX [Concomitant]
  6. METHADONE HCL [Concomitant]

REACTIONS (2)
  - NAUSEA [None]
  - SOMNOLENCE [None]
